FAERS Safety Report 9054024 (Version 3)
Quarter: 2013Q3

REPORT INFORMATION
  Report Type: Report from Study
  Country: JP (occurrence: JP)
  Receive Date: 20130208
  Receipt Date: 20130726
  Transmission Date: 20140515
  Serious: Yes (Other)
  Sender: FDA-Public Use
  Company Number: JP-EISAI INC-E2020-11942-CLI-JP

PATIENT
  Age: 85 Year
  Sex: Male

DRUGS (2)
  1. ARICEPT [Suspect]
     Indication: DEMENTIA ALZHEIMER^S TYPE
     Route: 048
     Dates: start: 20110228
  2. BAKTAR [Suspect]
     Indication: MYELODYSPLASTIC SYNDROME
     Dosage: 1 DF
     Route: 048
     Dates: start: 20120605

REACTIONS (1)
  - Myelodysplastic syndrome [Unknown]
